FAERS Safety Report 14029716 (Version 10)
Quarter: 2018Q3

REPORT INFORMATION
  Report Type: Spontaneous
  Country: US (occurrence: US)
  Receive Date: 20171002
  Receipt Date: 20180720
  Transmission Date: 20181010
  Serious: No
  Sender: FDA-Public Use
  Company Number: US-JAZZ-2017-US-011272

PATIENT
  Sex: Male
  Weight: 129.2 kg

DRUGS (51)
  1. GABAPENTIN. [Concomitant]
     Active Substance: GABAPENTIN
     Indication: DIABETIC FOOT
  2. CONCERTA [Concomitant]
     Active Substance: METHYLPHENIDATE HYDROCHLORIDE
  3. SELENIUM [Concomitant]
     Active Substance: SELENIUM
  4. XYREM [Suspect]
     Active Substance: SODIUM OXYBATE
     Dosage: 9 G, QD FIRST DOSE
     Route: 048
  5. IBUPROFEN. [Concomitant]
     Active Substance: IBUPROFEN
     Indication: INFLAMMATION
  6. VITAMIN D3 [Concomitant]
     Active Substance: CHOLECALCIFEROL
  7. GLIPIZIDE. [Concomitant]
     Active Substance: GLIPIZIDE
  8. XYREM [Suspect]
     Active Substance: SODIUM OXYBATE
     Indication: SLEEP DISORDER
     Dosage: DOSE ADJUSTMENTS
     Route: 048
     Dates: start: 201412, end: 20170612
  9. PARACETAMOL [Concomitant]
     Active Substance: ACETAMINOPHEN
     Indication: INFLAMMATION
  10. LANTUS [Concomitant]
     Active Substance: INSULIN GLARGINE
     Indication: TYPE 2 DIABETES MELLITUS
  11. TRAMADOL HCL [Concomitant]
     Active Substance: TRAMADOL HYDROCHLORIDE
  12. LIDOCAINE HCL [Concomitant]
     Active Substance: LIDOCAINE HYDROCHLORIDE
  13. LIDOCAINE W/PRILOCAINE [Concomitant]
     Active Substance: LIDOCAINE\PRILOCAINE
  14. HYDROCHLOROTHIAZIDE. [Concomitant]
     Active Substance: HYDROCHLOROTHIAZIDE
  15. OMEPRAZOLE. [Concomitant]
     Active Substance: OMEPRAZOLE
  16. ACETYLSALICYLIC ACID [Concomitant]
     Active Substance: ASPIRIN
  17. HOLY BASIL [Concomitant]
  18. ROZEREM [Concomitant]
     Active Substance: RAMELTEON
  19. COENZYME Q10 [Concomitant]
     Active Substance: UBIDECARENONE
  20. XYREM [Suspect]
     Active Substance: SODIUM OXYBATE
     Indication: CIRCADIAN RHYTHM SLEEP DISORDER
     Dosage: 2.25G, BID
     Route: 048
     Dates: start: 201411, end: 201412
  21. XYREM [Suspect]
     Active Substance: SODIUM OXYBATE
     Dosage: 6 G, QD, SECOND DOSE
     Route: 048
  22. CYCLOBENZAPRINE. [Concomitant]
     Active Substance: CYCLOBENZAPRINE
     Indication: MUSCLE RELAXANT THERAPY
  23. MI?ACID [Concomitant]
  24. SILYBUM MARIANUM [Concomitant]
     Active Substance: DIETARY SUPPLEMENT\HERBALS\MILK THISTLE
  25. XYREM [Suspect]
     Active Substance: SODIUM OXYBATE
     Dosage: 4.5 G, BID
     Route: 048
  26. NOVOLOG [Concomitant]
     Active Substance: INSULIN ASPART
  27. HYDROXYZINE HCL [Concomitant]
     Active Substance: HYDROXYZINE HYDROCHLORIDE
  28. DOXYCYCLINE. [Concomitant]
     Active Substance: DOXYCYCLINE
  29. HYDROMORPHONE [Concomitant]
     Active Substance: HYDROMORPHONE
  30. CITALOPRAM [Concomitant]
     Active Substance: CITALOPRAM HYDROBROMIDE
  31. CLONAZEPAM. [Concomitant]
     Active Substance: CLONAZEPAM
  32. PSYLLIUM FIBRE [Concomitant]
  33. XYREM [Suspect]
     Active Substance: SODIUM OXYBATE
     Dosage: 12 G, QD, FIRST DOSE
     Route: 048
  34. CITALOPRAM [Concomitant]
     Active Substance: CITALOPRAM HYDROBROMIDE
     Indication: SLEEP DISORDER
  35. TIZANIDINE. [Concomitant]
     Active Substance: TIZANIDINE
     Indication: MUSCLE RELAXANT THERAPY
  36. VICODIN ES [Concomitant]
     Active Substance: ACETAMINOPHEN\HYDROCODONE BITARTRATE
  37. ALPHA LIPOIC ACID [Concomitant]
     Active Substance: .ALPHA.-LIPOIC ACID
  38. L?THREONINE [Concomitant]
  39. CITALOPRAM [Concomitant]
     Active Substance: CITALOPRAM HYDROBROMIDE
     Indication: ANXIETY
  40. SODIUM BICARBONATE. [Concomitant]
     Active Substance: SODIUM BICARBONATE
  41. MODAFINIL. [Concomitant]
     Active Substance: MODAFINIL
  42. TEMAZEPAM. [Concomitant]
     Active Substance: TEMAZEPAM
  43. ECHINACEA PURPUREA [Concomitant]
     Active Substance: ECHINACEA PURPUREA
  44. OMEGA?3 FISH OIL [Concomitant]
     Active Substance: FISH OIL\OMEGA-3 FATTY ACIDS
  45. XYREM [Suspect]
     Active Substance: SODIUM OXYBATE
     Dosage: 9 G, QD
     Route: 048
     Dates: start: 2017
  46. XYREM [Suspect]
     Active Substance: SODIUM OXYBATE
     Dosage: 4.5 G, QD SECOND DOSE
     Route: 048
  47. METRONIDAZOLE. [Concomitant]
     Active Substance: METRONIDAZOLE
  48. BYETTA [Concomitant]
     Active Substance: EXENATIDE
  49. ALEVE [Concomitant]
     Active Substance: NAPROXEN SODIUM
  50. MELATONIN [Concomitant]
     Active Substance: MELATONIN
  51. TESTOSTERONE CYPIONATE. [Concomitant]
     Active Substance: TESTOSTERONE CYPIONATE

REACTIONS (5)
  - Cognitive disorder [Unknown]
  - Feeling abnormal [Unknown]
  - Treatment noncompliance [Unknown]
  - Drug ineffective [Unknown]
  - Insomnia [Unknown]
